FAERS Safety Report 15793972 (Version 2)
Quarter: 2019Q1

REPORT INFORMATION
  Report Type: Spontaneous
  Country: CN (occurrence: CN)
  Receive Date: 20190107
  Receipt Date: 20190110
  Transmission Date: 20190417
  Serious: Yes (Hospitalization)
  Sender: FDA-Public Use
  Company Number: CN-PFIZER INC-2019001064

PATIENT
  Age: 61 Year
  Sex: Male
  Weight: 60 kg

DRUGS (1)
  1. LIPITOR [Suspect]
     Active Substance: ATORVASTATIN CALCIUM
     Indication: CEREBRAL ISCHAEMIA
     Dosage: 1 DF, 1X/DAY
     Route: 048
     Dates: start: 20180904, end: 20181004

REACTIONS (3)
  - Drug-induced liver injury [Recovering/Resolving]
  - Jaundice [Recovering/Resolving]
  - Hepatic function abnormal [Recovering/Resolving]

NARRATIVE: CASE EVENT DATE: 20181004
